FAERS Safety Report 18458773 (Version 1)
Quarter: 2020Q4

REPORT INFORMATION
  Report Type: Spontaneous
  Country: ES (occurrence: ES)
  Receive Date: 20201103
  Receipt Date: 20201103
  Transmission Date: 20210114
  Serious: Yes (Life-Threatening, Hospitalization)
  Sender: FDA-Public Use
  Company Number: ES-BAYER-2020-229370

PATIENT
  Age: 58 Year
  Sex: Female

DRUGS (8)
  1. ESOMEPRAZOLE. [Concomitant]
     Active Substance: ESOMEPRAZOLE MAGNESIUM
  2. KEPPRA [Concomitant]
     Active Substance: LEVETIRACETAM
  3. BAYCIP 500 MG [Suspect]
     Active Substance: CIPROFLOXACIN
     Indication: URINARY TRACT INFECTION
     Dosage: 500 MG/12 H
     Route: 048
     Dates: start: 20200927, end: 20201005
  4. VESICARE [Concomitant]
     Active Substance: SOLIFENACIN SUCCINATE
  5. BETMIGA [Concomitant]
     Active Substance: MIRABEGRON
  6. QUETIAPINA [QUETIAPINE] [Concomitant]
     Active Substance: QUETIAPINE
  7. SEROXAT [PAROXETINE] [Concomitant]
  8. ABILIFY [Concomitant]
     Active Substance: ARIPIPRAZOLE

REACTIONS (1)
  - Catatonia [Not Recovered/Not Resolved]

NARRATIVE: CASE EVENT DATE: 20201005
